FAERS Safety Report 8240994 (Version 2)
Quarter: 2014Q1

REPORT INFORMATION
  Report Type: Spontaneous
  Country: FR (occurrence: FR)
  Receive Date: 20111111
  Receipt Date: 20140218
  Transmission Date: 20141002
  Serious: Yes (Hospitalization, Other)
  Sender: FDA-Public Use
  Company Number: FR-PFIZER INC-2011258786

PATIENT
  Age: 27 Year
  Sex: Female

DRUGS (2)
  1. EFFEXOR LP [Suspect]
     Dosage: 4500 MG, UNK
  2. PROZAC [Concomitant]
     Dosage: 1280 MG, UNK

REACTIONS (5)
  - Intentional overdose [Recovering/Resolving]
  - Toxicity to various agents [Recovering/Resolving]
  - Cardiogenic shock [Recovering/Resolving]
  - Serotonin syndrome [Recovering/Resolving]
  - Status epilepticus [Recovering/Resolving]
